FAERS Safety Report 24694891 (Version 1)
Quarter: 2024Q4

REPORT INFORMATION
  Report Type: Spontaneous
  Country: US (occurrence: None)
  Receive Date: 20241203
  Receipt Date: 20241203
  Transmission Date: 20250115
  Serious: Yes (Hospitalization)
  Sender: Public
  Company Number: None

PATIENT
  Age: 43 Year
  Sex: Male
  Weight: 166 kg

DRUGS (1)
  1. CIPROFLOXACIN HYDROCHLORIDE [Suspect]
     Active Substance: CIPROFLOXACIN HYDROCHLORIDE
     Indication: Limb injury
     Dosage: FREQUENCY : TWICE A DAY;?
     Route: 048
     Dates: start: 20240629, end: 20240704

REACTIONS (5)
  - Generalised tonic-clonic seizure [None]
  - Joint dislocation [None]
  - Arthralgia [None]
  - Musculoskeletal stiffness [None]
  - Impaired driving ability [None]

NARRATIVE: CASE EVENT DATE: 20240707
